FAERS Safety Report 9254110 (Version 1)
Quarter: 2013Q1

REPORT INFORMATION
  Report Type: Spontaneous
  Country: US (occurrence: None)
  Receive Date: 20121203
  Receipt Date: 20121203
  Transmission Date: 20140127
  Serious: Yes (Life-Threatening, Hospitalization, Other)
  Sender: FDA-Public Use
  Company Number: 1208USA001887

PATIENT
  Age: 26 Year
  Sex: Female
  Weight: 56.7 kg

DRUGS (1)
  1. NUVARING [Suspect]
     Indication: CONTRACEPTION
     Dosage: 0.120MG/DAY OF ETONOGESTREL AND O. 015 MG/DAY OF ETHINYL ESTRADIOL/21 DAYS, VAGINAL
     Route: 067
     Dates: start: 2010

REACTIONS (1)
  - Pulmonary embolism [None]
